FAERS Safety Report 10004271 (Version 2)
Quarter: 2014Q2

REPORT INFORMATION
  Report Type: Report from Study
  Country: US (occurrence: US)
  Receive Date: 20140312
  Receipt Date: 20140422
  Transmission Date: 20141212
  Serious: Yes (Hospitalization, Other)
  Sender: FDA-Public Use
  Company Number: US-ALEXION-A200800588

PATIENT
  Age: 52 Year
  Sex: Male

DRUGS (1)
  1. SOLIRIS [Suspect]
     Indication: PAROXYSMAL NOCTURNAL HAEMOGLOBINURIA
     Dosage: UNK
     Route: 042
     Dates: start: 20080214, end: 20080703

REACTIONS (19)
  - Abdominal pain [Not Recovered/Not Resolved]
  - Muscle spasms [Unknown]
  - Splenectomy [Unknown]
  - Splenomegaly [Not Recovered/Not Resolved]
  - Packed red blood cell transfusion [Recovered/Resolved]
  - Post procedural haemorrhage [Unknown]
  - Cold agglutinins [Unknown]
  - Pyrexia [Unknown]
  - White blood cell count decreased [Unknown]
  - Haematocrit decreased [Unknown]
  - Bronchitis [Unknown]
  - Disease progression [Unknown]
  - Pseudolymphoma [Unknown]
  - Drug ineffective [Unknown]
  - Haemoglobinuria [Not Recovered/Not Resolved]
  - Night sweats [Unknown]
  - Weight increased [Unknown]
  - Fatigue [Unknown]
  - Cough [Unknown]
